FAERS Safety Report 14926299 (Version 2)
Quarter: 2018Q2

REPORT INFORMATION
  Report Type: Report from Study
  Country: IT (occurrence: IT)
  Receive Date: 20180523
  Receipt Date: 20180630
  Transmission Date: 20180711
  Serious: Yes (Other)
  Sender: FDA-Public Use
  Company Number: IT-TEVA-2018-IT-893352

PATIENT
  Age: 70 Year
  Sex: Male
  Weight: 84 kg

DRUGS (10)
  1. ANAFRANIL [Interacting]
     Active Substance: CLOMIPRAMINE HYDROCHLORIDE
     Indication: DEPRESSION
     Dosage: 75 MILLIGRAM DAILY;
     Route: 048
  2. ARIXTRA 2.5 MG/0.5 ML SOLUTION FOR INJECTION PRE-FILLED SYRINGE [Concomitant]
     Route: 065
     Dates: start: 20180130
  3. CEFTRIAXONE. [Concomitant]
     Active Substance: CEFTRIAXONE
     Indication: BRONCHITIS
     Route: 065
     Dates: start: 20180130
  4. FUROSEMIDE S.A.L.F. 20 MG/2 ML SOLUZIONE INIETTABILE [Concomitant]
     Indication: OEDEMA PERIPHERAL
     Dosage: 20 MILLIGRAM DAILY;
     Route: 065
     Dates: start: 20180130
  5. PANTORC 40 MG POLVERE PER SOLUZIONE INIETTABILE [Concomitant]
     Dosage: 40 MILLIGRAM DAILY;
     Route: 065
     Dates: start: 20180126, end: 20180201
  6. QUETIAPINE FUMARATE. [Interacting]
     Active Substance: QUETIAPINE FUMARATE
     Indication: AGITATION
     Dosage: 100 MILLIGRAM DAILY;
     Route: 048
  7. GABAPENTIN. [Concomitant]
     Active Substance: GABAPENTIN
     Route: 065
  8. OLANZAPINA TEVA [Suspect]
     Active Substance: OLANZAPINE
     Indication: DEPRESSION
     Dosage: 2.5 MILLIGRAM DAILY;
     Route: 065
  9. LORAZEPAM. [Concomitant]
     Active Substance: LORAZEPAM
     Route: 065
  10. METHYLPREDNISOLONE. [Concomitant]
     Active Substance: METHYLPREDNISOLONE
     Indication: BRONCHOSTENOSIS
     Route: 065
     Dates: start: 20180130

REACTIONS (2)
  - Electrocardiogram QT prolonged [Unknown]
  - Drug interaction [Unknown]

NARRATIVE: CASE EVENT DATE: 20180202
